FAERS Safety Report 6925960-6 (Version None)
Quarter: 2010Q3

REPORT INFORMATION
  Report Type: 
  Country: None (occurrence: None)
  Receive Date: 20100816
  Receipt Date: 20100804
  Transmission Date: 20110219
  Serious: Yes (Other)
  Sender: FDA-Public Use
  Company Number: US-PFIZER INC-2010098731

PATIENT
  Sex: Male
  Weight: 74.376 kg

DRUGS (5)
  1. LYRICA [Suspect]
     Dosage: 225 MG, 1X/DAY
     Route: 048
     Dates: start: 20100723
  2. EFFEXOR [Concomitant]
     Indication: DEPRESSION
     Dosage: UNK
  3. VALIUM [Concomitant]
     Indication: DEPRESSION
     Dosage: UNK
  4. ZOCOR [Concomitant]
     Indication: BLOOD CHOLESTEROL INCREASED
     Dosage: UNK
  5. TRICOR [Concomitant]
     Indication: BLOOD CHOLESTEROL INCREASED
     Dosage: UNK

REACTIONS (3)
  - ABDOMINAL DISCOMFORT [None]
  - HEADACHE [None]
  - MALAISE [None]
